FAERS Safety Report 6514406-8 (Version None)
Quarter: 2009Q4

REPORT INFORMATION
  Report Type: 
  Country: None (occurrence: None)
  Receive Date: 20091223
  Receipt Date: 20091214
  Transmission Date: 20100525
  Serious: Yes (Hospitalization)
  Sender: FDA-Public Use
  Company Number: US-BIOGENIDEC-2009BI039114

PATIENT
  Age: 52 Year
  Sex: Female

DRUGS (12)
  1. TYSABRI [Suspect]
     Indication: MULTIPLE SCLEROSIS
     Route: 042
     Dates: start: 20080604
  2. COUMADIN [Concomitant]
  3. NEXIUM [Concomitant]
  4. DETROL [Concomitant]
  5. FOSAMAX [Concomitant]
  6. FLEXERIL [Concomitant]
  7. BENADRYL [Concomitant]
  8. TRAZODONE HCL [Concomitant]
  9. CYTOMEL [Concomitant]
  10. TOPAMAX [Concomitant]
  11. ZOLOFT [Concomitant]
  12. DIAZEPAM [Concomitant]

REACTIONS (8)
  - ABDOMINAL DISCOMFORT [None]
  - CENTRAL VENOUS CATHETERISATION [None]
  - CYSTITIS [None]
  - FALL [None]
  - GAIT DISTURBANCE [None]
  - JOINT INJURY [None]
  - PAIN [None]
  - THROMBOSIS [None]
